FAERS Safety Report 5288059-3 (Version None)
Quarter: 2007Q2

REPORT INFORMATION
  Report Type: 
  Country: None (occurrence: None)
  Receive Date: 20070405
  Receipt Date: 20070330
  Transmission Date: 20071010
  Serious: Yes (Hospitalization)
  Sender: FDA-Public Use
  Company Number: FR-BRISTOL-MYERS SQUIBB COMPANY-13736723

PATIENT
  Age: 80 Year
  Sex: Female

DRUGS (2)
  1. GLUCOVANCE [Suspect]
     Indication: DIABETES MELLITUS NON-INSULIN-DEPENDENT
  2. REMINYL [Suspect]
     Indication: SENILE DEMENTIA

REACTIONS (2)
  - FALL [None]
  - HYPOGLYCAEMIA [None]
